FAERS Safety Report 19688558 (Version 2)
Quarter: 2021Q3

REPORT INFORMATION
  Report Type: Spontaneous
  Country: US (occurrence: US)
  Receive Date: 20210811
  Receipt Date: 20210830
  Transmission Date: 20211014
  Serious: No
  Sender: FDA-Public Use
  Company Number: US-SA-2021SA262033

PATIENT
  Age: 6 Year
  Sex: Female

DRUGS (2)
  1. DUPIXENT [Suspect]
     Active Substance: DUPILUMAB
     Dosage: 300 MG, Q4W
     Route: 058
  2. DUPIXENT [Suspect]
     Active Substance: DUPILUMAB
     Indication: DERMATITIS ATOPIC
     Dosage: 600 MG, 1X
     Route: 058

REACTIONS (7)
  - Abdominal pain [Unknown]
  - Product use issue [Unknown]
  - Lethargy [Unknown]
  - Pyrexia [Unknown]
  - Eye pain [Unknown]
  - Somnolence [Unknown]
  - Viral infection [Unknown]

NARRATIVE: CASE EVENT DATE: 20210801
